FAERS Safety Report 25468886 (Version 1)
Quarter: 2025Q2

REPORT INFORMATION
  Report Type: Spontaneous
  Country: JP (occurrence: JP)
  Receive Date: 20250623
  Receipt Date: 20250623
  Transmission Date: 20250717
  Serious: Yes (Hospitalization)
  Sender: EISAI
  Company Number: JP-Eisai Medical Research-EC-2019-055184

PATIENT
  Age: 59 Year
  Sex: Male
  Weight: 58 kg

DRUGS (7)
  1. LENVATINIB [Suspect]
     Active Substance: LENVATINIB
     Indication: Papillary thyroid cancer
     Dates: start: 201809, end: 201810
  2. LENVATINIB [Suspect]
     Active Substance: LENVATINIB
     Dates: start: 201810, end: 201810
  3. LENVATINIB [Suspect]
     Active Substance: LENVATINIB
     Dates: start: 20181005, end: 201902
  4. LENVATINIB [Suspect]
     Active Substance: LENVATINIB
     Dates: start: 201911, end: 201911
  5. LENVATINIB [Suspect]
     Active Substance: LENVATINIB
     Dates: start: 201911
  6. AZILSARTAN KAMEDOXOMIL [Concomitant]
     Active Substance: AZILSARTAN KAMEDOXOMIL
     Indication: Product used for unknown indication
  7. NIFEDIPINE [Concomitant]
     Active Substance: NIFEDIPINE
     Indication: Product used for unknown indication

REACTIONS (6)
  - Oesophageal perforation [Recovered/Resolved]
  - Oesophageal ulcer [Recovered/Resolved]
  - Pyrexia [Recovered/Resolved]
  - Hypertension [Recovered/Resolved]
  - Palmar-plantar erythrodysaesthesia syndrome [Recovering/Resolving]
  - Diarrhoea [Recovered/Resolved]

NARRATIVE: CASE EVENT DATE: 20181001
